FAERS Safety Report 10618751 (Version 5)
Quarter: 2015Q1

REPORT INFORMATION
  Report Type: Spontaneous
  Country: US (occurrence: US)
  Receive Date: 20141202
  Receipt Date: 20150206
  Transmission Date: 20150720
  Serious: Yes (Hospitalization, Other)
  Sender: FDA-Public Use
  Company Number: US-PFIZER INC-2014327795

PATIENT
  Age: 66 Year
  Sex: Male

DRUGS (3)
  1. SUTENT [Suspect]
     Active Substance: SUNITINIB MALATE
     Indication: METASTATIC RENAL CELL CARCINOMA
     Dosage: 50 MG, 1X/DAY
     Route: 048
     Dates: start: 20141121, end: 20141208
  2. CARVEDILOL. [Concomitant]
     Active Substance: CARVEDILOL
     Dosage: 6.25 MG, 2X/DAY
     Route: 048
  3. INSULIN SLIDING SCALE [Concomitant]
     Dosage: UNK

REACTIONS (14)
  - Metastatic renal cell carcinoma [Unknown]
  - Syncope [Unknown]
  - Dehydration [Unknown]
  - Pancytopenia [Unknown]
  - Acute kidney injury [Unknown]
  - Jaundice [Unknown]
  - Staphylococcal infection [Unknown]
  - Hepatic enzyme increased [Unknown]
  - Feeling abnormal [Unknown]
  - Disease progression [Unknown]
  - Back pain [Recovering/Resolving]
  - Infusion site extravasation [Unknown]
  - Hypotension [Unknown]
  - Pyrexia [Unknown]

NARRATIVE: CASE EVENT DATE: 2014
